FAERS Safety Report 4390238-4 (Version None)
Quarter: 2004Q2

REPORT INFORMATION
  Report Type: 
  Country: None (occurrence: None)
  Receive Date: 20040630
  Receipt Date: 20040621
  Transmission Date: 20050107
  Serious: Yes (Disabling)
  Sender: FDA-Public Use
  Company Number: 2004-116415-NL

PATIENT
  Age: 54 Year
  Sex: Male

DRUGS (5)
  1. DANAPAROID SODIUM [Suspect]
     Indication: THROMBOSIS
     Dosage: SUBCUTANEOUS
     Route: 058
     Dates: start: 20030121
  2. HEPARIN [Suspect]
     Dosage: INTRAVENOUS (NOS)
     Route: 042
     Dates: start: 20030120, end: 20030121
  3. HEPARIN-FRACTION, SDOUM SALT [Suspect]
     Dosage: SUBCUTANEOUS
     Route: 058
     Dates: start: 20030115, end: 20030120
  4. HEAPRIN-FRACTION, SODIUM SALT [Suspect]
     Dosage: SUBCUTANEOUS
     Route: 058
     Dates: start: 20030108, end: 20030115
  5. .. [Concomitant]

REACTIONS (4)
  - JOINT DISLOCATION [None]
  - LEG AMPUTATION [None]
  - NECROSIS ISCHAEMIC [None]
  - THROMBOCYTOPENIA [None]
